FAERS Safety Report 23522342 (Version 3)
Quarter: 2024Q1

REPORT INFORMATION
  Report Type: Report from Study
  Country: US (occurrence: US)
  Receive Date: 20240214
  Receipt Date: 20240326
  Transmission Date: 20240409
  Serious: No
  Sender: FDA-Public Use
  Company Number: US-002147023-NVSC2024US031539

PATIENT
  Age: 55 Year
  Sex: Female

DRUGS (1)
  1. ILARIS [Suspect]
     Active Substance: CANAKINUMAB
     Indication: Still^s disease
     Dosage: 300 MG, Q4W
     Route: 058
     Dates: start: 20231014

REACTIONS (7)
  - Illness [Unknown]
  - Suspected COVID-19 [Unknown]
  - Cough [Unknown]
  - Pain [Unknown]
  - Nasal congestion [Unknown]
  - Product dose omission issue [Unknown]
  - Road traffic accident [Unknown]

NARRATIVE: CASE EVENT DATE: 20240322
